FAERS Safety Report 19045985 (Version 1)
Quarter: 2021Q1

REPORT INFORMATION
  Report Type: Spontaneous
  Country: US (occurrence: US)
  Receive Date: 20210323
  Receipt Date: 20210323
  Transmission Date: 20210420
  Serious: Yes (Hospitalization)
  Sender: FDA-Public Use
  Company Number: None

PATIENT
  Age: 70 Year
  Sex: Male

DRUGS (13)
  1. MEMANTINE. [Concomitant]
     Active Substance: MEMANTINE
  2. ZYKADIA [Suspect]
     Active Substance: CERITINIB
     Indication: LUNG CARCINOMA CELL TYPE UNSPECIFIED STAGE 0
     Route: 048
     Dates: start: 20170127
  3. MIDODRINE [Concomitant]
     Active Substance: MIDODRINE
  4. PANTOPRAZOLE [Concomitant]
     Active Substance: PANTOPRAZOLE
  5. TAMSULOSIN [Concomitant]
     Active Substance: TAMSULOSIN
  6. PANTOPRAZOLE [Concomitant]
     Active Substance: PANTOPRAZOLE
  7. ALBUTEROL. [Concomitant]
     Active Substance: ALBUTEROL
  8. ATORVASTATIN [Concomitant]
     Active Substance: ATORVASTATIN
  9. VALSARTAN. [Concomitant]
     Active Substance: VALSARTAN
  10. LICOCAINE [Concomitant]
  11. ONDANSETRON [Concomitant]
     Active Substance: ONDANSETRON
  12. AMOX/K CLAV [Concomitant]
     Active Substance: AMOXICILLIN\CLAVULANATE POTASSIUM
  13. TRIAMCINCOLON [Concomitant]

REACTIONS (1)
  - Pneumonia [None]
